FAERS Safety Report 9850747 (Version 2)
Quarter: 2014Q2

REPORT INFORMATION
  Report Type: Spontaneous
  Country: US (occurrence: US)
  Receive Date: 20140128
  Receipt Date: 20140516
  Transmission Date: 20141212
  Serious: Yes (Congenital Anomaly, Other)
  Sender: FDA-Public Use
  Company Number: US-PFIZER INC-2014024412

PATIENT
  Sex: Male

DRUGS (3)
  1. ZOLOFT [Suspect]
     Dosage: UNK
     Route: 064
     Dates: start: 199909
  2. ZOLOFT [Suspect]
     Dosage: UNK
     Route: 064
     Dates: start: 200110
  3. PRENATAL VITAMINS [Concomitant]
     Dosage: UNK
     Route: 064

REACTIONS (10)
  - Maternal exposure during pregnancy [Unknown]
  - Persistent foetal circulation [Unknown]
  - Pneumothorax [Unknown]
  - Attention deficit/hyperactivity disorder [Unknown]
  - Hypertension [Unknown]
  - Confusional state [Unknown]
  - Anger [Unknown]
  - Frustration [Unknown]
  - Restlessness [Unknown]
  - Learning disability [Unknown]
